FAERS Safety Report 8911621 (Version 1)
Quarter: 2012Q4

REPORT INFORMATION
  Report Type: 
  Country: CN (occurrence: CN)
  Receive Date: 20121115
  Receipt Date: 20121115
  Transmission Date: 20130627
  Serious: Yes (Other)
  Sender: FDA-Public Use
  Company Number: CN-PFIZER INC-2012281808

PATIENT
  Age: 7 Year
  Sex: Female

DRUGS (2)
  1. TAZOCIN [Suspect]
     Indication: INFECTION URINARY TRACT
  2. TAZOCIN [Suspect]
     Indication: NOSOCOMIAL PNEUMONIA

REACTIONS (5)
  - Hyperpyrexia [Recovered/Resolved]
  - Tubulointerstitial nephritis [Recovered/Resolved]
  - Hypersensitivity [Recovered/Resolved]
  - Back pain [Recovered/Resolved]
  - White blood cells urine [Recovered/Resolved]
